FAERS Safety Report 7990443-1 (Version None)
Quarter: 2011Q4

REPORT INFORMATION
  Report Type: 
  Country: None (occurrence: None)
  Receive Date: 20111219
  Receipt Date: 20101101
  Transmission Date: 20120403
  Serious: No
  Sender: FDA-Public Use
  Company Number: US-ASTRAZENECA-2010SE36566

PATIENT
  Age: 70 Year
  Sex: Female
  Weight: 61.2 kg

DRUGS (11)
  1. CRESTOR [Suspect]
     Route: 048
     Dates: start: 20090101
  2. DEMADEX [Concomitant]
  3. HYZAAR [Concomitant]
  4. LIPITOR [Concomitant]
  5. MEVACOR [Concomitant]
  6. INDERAL [Concomitant]
  7. DOXICILLIN [Concomitant]
  8. CRESTOR [Suspect]
     Route: 048
  9. NORVASC [Concomitant]
  10. CRESTOR [Suspect]
     Route: 048
     Dates: start: 20090101
  11. POTASSIUM CHLORIDE [Concomitant]

REACTIONS (3)
  - ALOPECIA [None]
  - DRY EYE [None]
  - MUSCLE SPASMS [None]
